FAERS Safety Report 25828684 (Version 1)
Quarter: 2025Q3

REPORT INFORMATION
  Report Type: Report from Study
  Country: US (occurrence: None)
  Receive Date: 20250922
  Receipt Date: 20250922
  Transmission Date: 20251021
  Serious: Yes (Other)
  Sender: ENCUBE ETHICALS PVT. LTD.
  Company Number: US-Encube-002264

PATIENT

DRUGS (1)
  1. FLUOROURACIL [Suspect]
     Active Substance: FLUOROURACIL
     Indication: Sebaceous carcinoma
     Dosage: EYE DROP; FOUR TIMES DAILY 1 WEEK ON/3 WEEKS OFF FOR 4 CYCLES

REACTIONS (2)
  - Corneal epithelium defect [Recovered/Resolved]
  - Off label use [Unknown]
